FAERS Safety Report 5258245-7 (Version None)
Quarter: 2007Q1

REPORT INFORMATION
  Report Type: 
  Country: None (occurrence: None)
  Receive Date: 20070305
  Receipt Date: 20070215
  Transmission Date: 20070707
  Serious: Yes (Hospitalization)
  Sender: FDA-Public Use
  Company Number: DSA_29447_2007

PATIENT
  Age: 30 Year
  Sex: Female

DRUGS (5)
  1. LORAZEPAM [Suspect]
     Dosage: 2.5 MG Q DAY PO
     Route: 048
     Dates: start: 20060530, end: 20060530
  2. LORAZEPAM [Suspect]
     Dosage: 2 MG Q DAY PO
     Route: 048
     Dates: start: 20060601
  3. ZYPREXA [Suspect]
     Dosage: 10 MG ONCE IM
     Route: 030
     Dates: start: 20060529, end: 20060529
  4. ZYPREXA [Suspect]
     Dosage: 10 MG Q DAY PO
     Route: 048
     Dates: start: 20060530, end: 20060530
  5. ZYPREXA [Suspect]
     Dosage: 7.5 MG Q DAY PO
     Route: 048
     Dates: start: 20060601

REACTIONS (6)
  - DEHYDRATION [None]
  - DIZZINESS [None]
  - HYPERSOMNIA [None]
  - HYPOTENSION [None]
  - OXYGEN SATURATION DECREASED [None]
  - SEDATION [None]
